FAERS Safety Report 8127774-0 (Version None)
Quarter: 2012Q1

REPORT INFORMATION
  Report Type: 
  Country: None (occurrence: None)
  Receive Date: 20120210
  Receipt Date: 20120202
  Transmission Date: 20120608
  Serious: Yes (Death)
  Sender: FDA-Public Use
  Company Number: AU-JNJFOC-20110801009

PATIENT
  Sex: Male
  Weight: 125 kg

DRUGS (3)
  1. PREDNISOLONE [Concomitant]
  2. REMICADE [Suspect]
     Indication: SARCOIDOSIS
     Route: 042
     Dates: start: 20110101
  3. IMURAN [Concomitant]

REACTIONS (1)
  - VASCULITIS [None]
